FAERS Safety Report 9914980 (Version 1)
Quarter: 2014Q1

REPORT INFORMATION
  Report Type: Spontaneous
  Country: DE (occurrence: DE)
  Receive Date: 20140220
  Receipt Date: 20140220
  Transmission Date: 20141002
  Serious: Yes (Other)
  Sender: FDA-Public Use
  Company Number: GXKR2014DE000876

PATIENT
  Age: 10 Year
  Sex: Male

DRUGS (1)
  1. TRIAMHEXAL [Suspect]
     Indication: KELOID SCAR
     Dosage: 10 MG, UNK
     Route: 065

REACTIONS (1)
  - Immune thrombocytopenic purpura [Unknown]
